FAERS Safety Report 22343299 (Version 1)
Quarter: 2023Q2

REPORT INFORMATION
  Report Type: Report from Study
  Country: US (occurrence: US)
  Receive Date: 20230519
  Receipt Date: 20230519
  Transmission Date: 20230721
  Serious: Yes (Other)
  Sender: FDA-Public Use
  Company Number: US-002147023-NVSC2023US111091

PATIENT
  Sex: Female

DRUGS (10)
  1. OXALIPLATIN [Suspect]
     Active Substance: OXALIPLATIN
     Indication: Ductal adenocarcinoma of pancreas
     Dosage: UNK UNK, Q2W (OTHER)
     Route: 065
     Dates: start: 202112, end: 202302
  2. OXALIPLATIN [Suspect]
     Active Substance: OXALIPLATIN
     Dosage: UNK UNK, Q2W (OTHER)
     Route: 065
     Dates: start: 202201, end: 202303
  3. OXALIPLATIN [Suspect]
     Active Substance: OXALIPLATIN
     Dosage: UNK UNK, Q2W (OTHER)
     Route: 065
     Dates: start: 202202, end: 202305
  4. IRINOTECAN [Suspect]
     Active Substance: IRINOTECAN
     Indication: Ductal adenocarcinoma of pancreas
     Dosage: UNK, Q2W (OTHER)
     Route: 065
     Dates: start: 202112, end: 202302
  5. IRINOTECAN [Suspect]
     Active Substance: IRINOTECAN
     Dosage: UNK, Q2W (OTHER)
     Route: 065
     Dates: start: 202201, end: 202303
  6. IRINOTECAN [Suspect]
     Active Substance: IRINOTECAN
     Dosage: UNK, Q2W (OTHER)
     Route: 065
     Dates: start: 202202, end: 202305
  7. FLUOROURACIL [Suspect]
     Active Substance: FLUOROURACIL
     Indication: Ductal adenocarcinoma of pancreas
     Dosage: UNK, Q2W (OTHER)
     Route: 065
     Dates: start: 202112, end: 202302
  8. FLUOROURACIL [Suspect]
     Active Substance: FLUOROURACIL
     Dosage: UNK, Q2W (OTHER)
     Route: 065
     Dates: start: 202201, end: 202303
  9. FLUOROURACIL [Suspect]
     Active Substance: FLUOROURACIL
     Dosage: UNK, Q2W (OTHER)
     Route: 065
     Dates: start: 202202, end: 202305
  10. LEUCOVORIN [Suspect]
     Active Substance: LEUCOVORIN
     Indication: Product used for unknown indication
     Dosage: UNK, Q2W
     Route: 065

REACTIONS (2)
  - Ductal adenocarcinoma of pancreas [Unknown]
  - Malignant neoplasm progression [Unknown]
